FAERS Safety Report 23671771 (Version 1)
Quarter: 2024Q1

REPORT INFORMATION
  Report Type: Spontaneous
  Country: US (occurrence: US)
  Receive Date: 20240326
  Receipt Date: 20240326
  Transmission Date: 20240409
  Serious: No
  Sender: FDA-Public Use
  Company Number: US-JNJFOC-20240305083

PATIENT
  Age: 8 Decade
  Sex: Female

DRUGS (2)
  1. MENS ROGAINE EXTRA STRENGTH [Suspect]
     Active Substance: MINOXIDIL
     Indication: Alopecia
     Dosage: PRODUCT DOSE OR QUANTITY: APPLY 3 FULL DROPPERS EVERY USE.
     Route: 061
  2. MENS ROGAINE EXTRA STRENGTH [Suspect]
     Active Substance: MINOXIDIL
     Dosage: PRODUCT DOSE OR QUANTITY: APPLY 3 FULL DROPPERS EVERY USE.
     Route: 061
     Dates: start: 2023

REACTIONS (7)
  - Alopecia [Recovered/Resolved]
  - Hair growth abnormal [Recovered/Resolved]
  - Therapeutic response unexpected [Unknown]
  - Off label use [Unknown]
  - Overdose [Unknown]
  - Suspected counterfeit product [Unknown]
  - Product formulation issue [Unknown]

NARRATIVE: CASE EVENT DATE: 20231224
